FAERS Safety Report 18927812 (Version 1)
Quarter: 2021Q1

REPORT INFORMATION
  Report Type: Spontaneous
  Country: US (occurrence: US)
  Receive Date: 20210223
  Receipt Date: 20210223
  Transmission Date: 20210420
  Serious: Yes (Other)
  Sender: FDA-Public Use
  Company Number: None

PATIENT
  Age: 62 Year
  Sex: Female

DRUGS (4)
  1. BENADRYL [Concomitant]
     Active Substance: DIPHENHYDRAMINE HYDROCHLORIDE
     Dates: start: 20210218, end: 20210218
  2. DEXAMETHASONE 10 MG [Concomitant]
     Dates: start: 20210218, end: 20210218
  3. DOCETAXEL. [Suspect]
     Active Substance: DOCETAXEL
     Dates: start: 20210218, end: 20210218
  4. PEPCID 20 MG [Concomitant]
     Dates: start: 20210218, end: 20210218

REACTIONS (4)
  - Dyspnoea [None]
  - Back pain [None]
  - Flushing [None]
  - Infusion related reaction [None]

NARRATIVE: CASE EVENT DATE: 20210218
